FAERS Safety Report 6616033-0 (Version None)
Quarter: 2010Q1

REPORT INFORMATION
  Report Type: 
  Country: None (occurrence: None)
  Receive Date: 20100305
  Receipt Date: 20100224
  Transmission Date: 20100710
  Serious: Yes (Hospitalization)
  Sender: FDA-Public Use
  Company Number: B0636766A

PATIENT
  Sex: Male
  Weight: 50 kg

DRUGS (9)
  1. ARIXTRA [Suspect]
     Indication: THROMBOSIS PROPHYLAXIS
     Dosage: 1.5MG PER DAY
     Route: 058
     Dates: start: 20091021, end: 20091026
  2. RACOL [Concomitant]
  3. INOVAN [Concomitant]
     Route: 042
  4. CEFAMEZIN [Concomitant]
  5. FESIN [Concomitant]
     Route: 042
  6. UNKNOWN DRUG [Concomitant]
     Route: 042
  7. OMEPRAL [Concomitant]
     Route: 042
  8. VITAMEDIN [Concomitant]
     Route: 042
  9. LEPETAN [Concomitant]

REACTIONS (2)
  - LYMPHORRHOEA [None]
  - PYREXIA [None]
